FAERS Safety Report 16985253 (Version 8)
Quarter: 2020Q2

REPORT INFORMATION
  Report Type: Report from Study
  Country: FR (occurrence: FR)
  Receive Date: 20191101
  Receipt Date: 20200608
  Transmission Date: 20200713
  Serious: Yes (Hospitalization)
  Sender: FDA-Public Use
  Company Number: NVSC2019FR011257

PATIENT
  Age: 52 Year
  Sex: Male
  Weight: 90 kg

DRUGS (8)
  1. ENOXAPARIN [Concomitant]
     Active Substance: ENOXAPARIN
     Indication: DRESSLER^S SYNDROME
     Dosage: 4000 IU, QD
     Route: 058
     Dates: start: 20191005
  2. FUROSEMIDE. [Concomitant]
     Active Substance: FUROSEMIDE
     Indication: DRESSLER^S SYNDROME
     Dosage: 40 MG, BID
     Route: 048
     Dates: start: 20191009, end: 20191010
  3. ATORVASTATIN [Concomitant]
     Active Substance: ATORVASTATIN
     Indication: DRESSLER^S SYNDROME
     Dosage: 80 MG, QD
     Route: 048
     Dates: start: 20191007
  4. EPLERENONE. [Concomitant]
     Active Substance: EPLERENONE
     Indication: DRESSLER^S SYNDROME
     Dosage: 25 MG ONCE/SINGLE
     Route: 048
     Dates: start: 20191009
  5. AUGMENTIN [Concomitant]
     Active Substance: AMOXICILLIN\CLAVULANATE POTASSIUM
     Indication: INFECTION PROPHYLAXIS
     Dosage: 2000 MG, TID
     Route: 042
     Dates: start: 20191007
  6. ACETYLSALICYLIC ACID [Concomitant]
     Active Substance: ASPIRIN
     Indication: DRESSLER^S SYNDROME
     Dosage: 75 MG, QD
     Route: 048
     Dates: start: 20191005
  7. PRASUREL [Concomitant]
     Indication: DRESSLER^S SYNDROME
     Dosage: 10 MG, QD
     Route: 048
     Dates: start: 20191005
  8. SACUBITRIL,VALSARTAN [Suspect]
     Active Substance: SACUBITRIL\VALSARTAN
     Indication: ACUTE MYOCARDIAL INFARCTION
     Dosage: 5 MG, BID
     Route: 048
     Dates: start: 20191009, end: 20191015

REACTIONS (5)
  - Acute kidney injury [Recovered/Resolved]
  - Vasoplegia syndrome [Recovered/Resolved]
  - Cardiogenic shock [Recovered/Resolved]
  - Cardiac failure [Recovered/Resolved with Sequelae]
  - Cardiac failure [Recovered/Resolved]

NARRATIVE: CASE EVENT DATE: 20191010
